FAERS Safety Report 5705697-1 (Version None)
Quarter: 2008Q2

REPORT INFORMATION
  Report Type: 
  Country: None (occurrence: None)
  Receive Date: 20080415
  Receipt Date: 20080407
  Transmission Date: 20081010
  Serious: No
  Sender: FDA-Public Use
  Company Number: A0637196A

PATIENT
  Age: 69 Year
  Sex: Female
  Weight: 68.2 kg

DRUGS (12)
  1. LAMICTAL [Suspect]
     Indication: BIPOLAR DISORDER
     Dosage: 300MG PER DAY
     Route: 048
     Dates: start: 20060101
  2. VIVELLE [Suspect]
     Indication: HORMONE REPLACEMENT THERAPY
     Dosage: 1PAT TWO TIMES PER WEEK
     Route: 062
  3. BENICAR [Concomitant]
  4. LOZOL [Concomitant]
  5. CALCIUM [Concomitant]
     Dosage: 2TAB PER DAY
  6. VITAMINS [Concomitant]
     Dosage: 1TAB PER DAY
  7. ASPIRIN [Concomitant]
  8. XANAX [Concomitant]
  9. BLOOD PRESSURE MEDICATION [Concomitant]
  10. AMBIEN [Concomitant]
  11. FISH OIL [Concomitant]
  12. GLUCOSAMINE [Concomitant]

REACTIONS (11)
  - AFFECT LABILITY [None]
  - ANXIETY [None]
  - DRUG INTERACTION [None]
  - FEELING JITTERY [None]
  - HOT FLUSH [None]
  - INSOMNIA [None]
  - MIGRAINE [None]
  - MUSCLE TIGHTNESS [None]
  - OEDEMA PERIPHERAL [None]
  - SPEECH DISORDER [None]
  - TREMOR [None]
